FAERS Safety Report 20704915 (Version 1)
Quarter: 2022Q2

REPORT INFORMATION
  Report Type: Spontaneous
  Country: US (occurrence: None)
  Receive Date: 20220413
  Receipt Date: 20220413
  Transmission Date: 20220721
  Serious: Yes (Death)
  Sender: FDA-Public Use
  Company Number: None

PATIENT
  Age: 43 Year
  Sex: Female

DRUGS (15)
  1. AMBRISENTAN [Suspect]
     Active Substance: AMBRISENTAN
     Indication: Pulmonary arterial hypertension
     Dosage: FREQUENCY : DAILY;?
     Route: 048
     Dates: start: 20210105, end: 20220412
  2. UPTRAVI [Concomitant]
     Active Substance: SELEXIPAG
  3. SPIRONOLACTONE [Concomitant]
     Active Substance: SPIRONOLACTONE
  4. TORSEMIDE [Concomitant]
     Active Substance: TORSEMIDE
  5. MAFOTIDINE [Concomitant]
  6. POTASSIUM CHLORIDE [Concomitant]
     Active Substance: POTASSIUM CHLORIDE
  7. MAGNESIUM OXIDE [Concomitant]
     Active Substance: MAGNESIUM OXIDE
  8. COENZYME Q10 [Concomitant]
     Active Substance: DIETARY SUPPLEMENT\UBIDECARENONE
  9. VITAMIN B-2 [Concomitant]
  10. MIRENA [Concomitant]
     Active Substance: LEVONORGESTREL
  11. TYLENOL [Concomitant]
     Active Substance: ACETAMINOPHEN
  12. JUNEL FE 1/20 [Concomitant]
     Active Substance: ETHINYL ESTRADIOL\NORETHINDRONE ACETATE
  13. FERROUS SULFATE [Concomitant]
     Active Substance: FERROUS SULFATE
  14. COLACE [Concomitant]
     Active Substance: DOCUSATE SODIUM
  15. ALBUTEROL HFA [Concomitant]

REACTIONS (4)
  - Dyspnoea [None]
  - Cardiac arrest [None]
  - Cardio-respiratory arrest [None]
  - Cardiac failure [None]

NARRATIVE: CASE EVENT DATE: 20220412
